FAERS Safety Report 14912223 (Version 1)
Quarter: 2018Q2

REPORT INFORMATION
  Report Type: Spontaneous
  Country: FR (occurrence: FR)
  Receive Date: 20180518
  Receipt Date: 20180518
  Transmission Date: 20180711
  Serious: Yes (Other)
  Sender: FDA-Public Use
  Company Number: FR-MERCK KGAA-2048048

PATIENT
  Sex: Female

DRUGS (1)
  1. NOVOTHYROX [Suspect]
     Active Substance: LEVOTHYROXINE SODIUM
     Indication: PRODUCT USED FOR UNKNOWN INDICATION

REACTIONS (11)
  - Diplegia [None]
  - Memory impairment [None]
  - Headache [None]
  - Vertigo [None]
  - Menstrual disorder [None]
  - Palpitations [None]
  - Hypoglycaemia [None]
  - Impaired work ability [None]
  - Irritability [None]
  - Anger [None]
  - Disturbance in attention [None]
